FAERS Safety Report 10964165 (Version 2)
Quarter: 2015Q2

REPORT INFORMATION
  Report Type: Spontaneous
  Country: US (occurrence: US)
  Receive Date: 20150329
  Receipt Date: 20150524
  Transmission Date: 20150821
  Serious: No
  Sender: FDA-Public Use
  Company Number: US-JNJFOC-20131117484

PATIENT
  Age: 43 Year
  Sex: Female
  Weight: 56.7 kg

DRUGS (3)
  1. DURAGESIC [Suspect]
     Active Substance: FENTANYL
     Indication: PANCREATITIS
     Dosage: 100 + 75 UG/HR
     Route: 062
     Dates: start: 20110220
  2. DURAGESIC [Suspect]
     Active Substance: FENTANYL
     Indication: FIBROMYALGIA
     Dosage: 100 + 75 UG/HR
     Route: 062
     Dates: start: 20110220
  3. XANAX [Concomitant]
     Active Substance: ALPRAZOLAM
     Indication: ANXIETY
     Dosage: ONCE OR TWICE A DAY
     Route: 048
     Dates: start: 20110220

REACTIONS (2)
  - Therapeutic response decreased [Recovered/Resolved]
  - Product quality issue [Recovered/Resolved]

NARRATIVE: CASE EVENT DATE: 201308
